FAERS Safety Report 5242257-3 (Version None)
Quarter: 2007Q1

REPORT INFORMATION
  Report Type: 
  Country: None (occurrence: None)
  Receive Date: 20070216
  Receipt Date: 20070216
  Transmission Date: 20070707
  Serious: Yes (Other)
  Sender: FDA-Public Use
  Company Number: None

PATIENT
  Age: 61 Year
  Sex: Female
  Weight: 79.3795 kg

DRUGS (1)
  1. MINOCYCLINE HCL [Suspect]
     Indication: FOLLICULITIS
     Dosage: 1 CAP/TAB   4   BUCCAL   (ONE DOSE)
     Route: 002
     Dates: start: 20040220, end: 20040220

REACTIONS (8)
  - CHILLS [None]
  - FATIGUE [None]
  - HEADACHE [None]
  - INFLUENZA LIKE ILLNESS [None]
  - LETHARGY [None]
  - NAUSEA [None]
  - TREMOR [None]
  - VOMITING [None]
